FAERS Safety Report 6881804-2 (Version None)
Quarter: 2010Q3

REPORT INFORMATION
  Report Type: 
  Country: None (occurrence: None)
  Receive Date: 20100729
  Receipt Date: 20100719
  Transmission Date: 20110219
  Serious: Yes (Other)
  Sender: FDA-Public Use
  Company Number: US-PFIZER INC-2010090389

PATIENT
  Sex: Female

DRUGS (1)
  1. XANAX XR [Suspect]
     Dosage: UNK
     Route: 048

REACTIONS (3)
  - ANXIETY [None]
  - BLOOD CHOLESTEROL INCREASED [None]
  - HYPERTENSION [None]
